FAERS Safety Report 9669383 (Version 1)
Quarter: 2013Q4

REPORT INFORMATION
  Report Type: Spontaneous
  Country: ES (occurrence: ES)
  Receive Date: 20131105
  Receipt Date: 20131105
  Transmission Date: 20140711
  Serious: Yes (Hospitalization)
  Sender: FDA-Public Use
  Company Number: ES-ASTRAZENECA-2013SE79523

PATIENT
  Age: 69 Year
  Sex: Male

DRUGS (1)
  1. PROVISACOR [Suspect]
     Indication: HYPERLIPIDAEMIA
     Route: 048
     Dates: start: 20121130, end: 20130116

REACTIONS (2)
  - Renal failure acute [Unknown]
  - Rhabdomyolysis [Unknown]
